FAERS Safety Report 25395645 (Version 1)
Quarter: 2025Q2

REPORT INFORMATION
  Report Type: Spontaneous
  Country: US (occurrence: US)
  Receive Date: 20250604
  Receipt Date: 20250604
  Transmission Date: 20250716
  Serious: No
  Sender: ROCHE
  Company Number: US-ROCHE-10000296521

PATIENT
  Sex: Male

DRUGS (1)
  1. XOLAIR [Suspect]
     Active Substance: OMALIZUMAB
     Indication: Idiopathic urticaria
     Route: 058
     Dates: start: 202504

REACTIONS (6)
  - Fatigue [Unknown]
  - Muscle twitching [Unknown]
  - Acne [Unknown]
  - Nasal congestion [Unknown]
  - Lacrimation increased [Unknown]
  - Erythema [Unknown]
